FAERS Safety Report 5129281-6 (Version None)
Quarter: 2006Q4

REPORT INFORMATION
  Report Type: 
  Country: None (occurrence: None)
  Receive Date: 20061011
  Receipt Date: 20060925
  Transmission Date: 20070319
  Serious: Yes (Death, Hospitalization)
  Sender: FDA-Public Use
  Company Number: 2005JP001841

PATIENT
  Age: 53 Year
  Sex: Male

DRUGS (1)
  1. TACROLIMUS CAPSULES (TACROLIMUS) CAPSULE [Suspect]
     Indication: RENAL TRANSPLANT
     Dosage: ORAL
     Route: 048
     Dates: start: 20050617, end: 20050916

REACTIONS (5)
  - CARDIAC ARREST [None]
  - LOCALISED INFECTION [None]
  - POST PROCEDURAL URINE LEAK [None]
  - SEPSIS [None]
  - VENTRICULAR TACHYCARDIA [None]
